FAERS Safety Report 5371090-7 (Version None)
Quarter: 2007Q2

REPORT INFORMATION
  Report Type: 
  Country: None (occurrence: None)
  Receive Date: 20070622
  Receipt Date: 20070611
  Transmission Date: 20071010
  Serious: Yes (Hospitalization)
  Sender: FDA-Public Use
  Company Number: 2007-02792

PATIENT
  Age: 61 Year
  Sex: Female

DRUGS (5)
  1. FORTAMET [Suspect]
     Indication: DIABETES MELLITUS
     Dosage: 1 GR, BID X 1.5 YEARS, ORAL
     Route: 048
  2. ROFECOXIB [Suspect]
     Indication: PROCEDURAL PAIN
     Dosage: SEE IMAGE
     Route: 048
  3. ACENOCOUMAROL (ACENOCOUMAOL) [Suspect]
     Indication: ANTICOAGULANT THERAPY
     Dosage: 3 MG, DAILY, ORAL
     Route: 048
  4. FUROSEMIDE [Concomitant]
  5. RAMIPRIL 9RAMIPRIL) [Concomitant]

REACTIONS (7)
  - AORTIC VALVE REPLACEMENT [None]
  - DRUG INTERACTION [None]
  - DRUG INTERACTION POTENTIATION [None]
  - LACTIC ACIDOSIS [None]
  - PROTHROMBIN TIME PROLONGED [None]
  - RENAL FAILURE [None]
  - THERAPEUTIC AGENT TOXICITY [None]
